FAERS Safety Report 5423573-9 (Version None)
Quarter: 2007Q3

REPORT INFORMATION
  Report Type: 
  Country: None (occurrence: None)
  Receive Date: 20070821
  Receipt Date: 20070821
  Transmission Date: 20080115
  Serious: Yes (Other)
  Sender: FDA-Public Use
  Company Number: None

PATIENT
  Sex: Male

DRUGS (3)
  1. INDERAL LA [Suspect]
     Indication: CONVULSION
     Dosage: 160MG QD YEARS AGO
  2. INDERAL LA [Suspect]
     Indication: MIGRAINE
     Dosage: 160MG QD YEARS AGO
  3. INDERAL LA [Suspect]
     Indication: TREMOR
     Dosage: 160MG QD YEARS AGO

REACTIONS (2)
  - DRUG INEFFECTIVE [None]
  - THERAPEUTIC RESPONSE UNEXPECTED WITH DRUG SUBSTITUTION [None]
